FAERS Safety Report 5125773-4 (Version None)
Quarter: 2006Q4

REPORT INFORMATION
  Report Type: 
  Country: None (occurrence: None)
  Receive Date: 20061010
  Receipt Date: 20061010
  Transmission Date: 20070319
  Serious: Yes (Other)
  Sender: FDA-Public Use
  Company Number: None

PATIENT
  Sex: Female

DRUGS (1)
  1. AMBIEN [Suspect]
     Dosage: 5 MG 1 HS PO
     Route: 048
     Dates: start: 20060921, end: 20060929

REACTIONS (6)
  - ABNORMAL SLEEP-RELATED EVENT [None]
  - DRUG INEFFECTIVE [None]
  - DYSGEUSIA [None]
  - PALPITATIONS [None]
  - PHARMACEUTICAL PRODUCT COMPLAINT [None]
  - VISION BLURRED [None]
